FAERS Safety Report 5584976-5 (Version None)
Quarter: 2007Q4

REPORT INFORMATION
  Report Type: 
  Country: None (occurrence: None)
  Receive Date: 20071130
  Receipt Date: 20070518
  Transmission Date: 20080405
  Serious: Yes (Other)
  Sender: FDA-Public Use
  Company Number: WAES 0705USA03622

PATIENT
  Age: 60 Year
  Sex: Female

DRUGS (4)
  1. FOSAMAX [Suspect]
     Dosage: 10 MG/DAILY/PO
     Route: 048
     Dates: start: 20000901, end: 20020901
  2. ACTONEL [Concomitant]
  3. CELEBREX [Concomitant]
  4. ACYCLOVIR [Concomitant]

REACTIONS (5)
  - ANXIETY [None]
  - DEPRESSION [None]
  - GINGIVAL DISORDER [None]
  - OSTEONECROSIS [None]
  - PERIODONTAL DISEASE [None]
